FAERS Safety Report 5510254-6 (Version None)
Quarter: 2007Q4

REPORT INFORMATION
  Report Type: 
  Country: None (occurrence: None)
  Receive Date: 20071108
  Receipt Date: 20071029
  Transmission Date: 20080405
  Serious: Yes (Hospitalization, Other)
  Sender: FDA-Public Use
  Company Number: US-ELI_LILLY_AND_COMPANY-US200710007166

PATIENT
  Sex: Female

DRUGS (2)
  1. FORTEO [Suspect]
     Indication: OSTEOARTHRITIS
     Dates: start: 20070101
  2. PREDNISONE TAB [Concomitant]

REACTIONS (8)
  - ANAEMIA [None]
  - CROHN'S DISEASE [None]
  - GOUT [None]
  - HAEMORRHAGE [None]
  - HERPES ZOSTER [None]
  - RASH [None]
  - WEIGHT DECREASED [None]
  - WEIGHT INCREASED [None]
